FAERS Safety Report 8780981 (Version 1)
Quarter: 2012Q4

REPORT INFORMATION
  Report Type: 
  Country: JP (occurrence: JP)
  Receive Date: 20120913
  Receipt Date: 20120913
  Transmission Date: 20130627
  Serious: Yes (Disabling, Other)
  Sender: FDA-Public Use
  Company Number: JP-009507513-1012USA04077

PATIENT
  Age: 68 Year
  Sex: Female

DRUGS (4)
  1. FOSAMAC TABLETS 35MG [Suspect]
     Indication: OSTEOPOROSIS
     Dosage: daily dose unknown
     Route: 048
     Dates: start: 200211, end: 20090722
  2. PREDONINE [Concomitant]
     Indication: PHLEBITIS
     Dosage: 8 mg, qd
     Route: 048
  3. WARFARIN [Concomitant]
     Dosage: Divided dose frequency U
     Route: 048
  4. INSULIN [Concomitant]
     Indication: DIABETES MELLITUS
     Dosage: daily dosage unknown
     Route: 058

REACTIONS (3)
  - Osteomyelitis [Not Recovered/Not Resolved]
  - Osteonecrosis of jaw [Recovering/Resolving]
  - Periodontitis [Unknown]
